FAERS Safety Report 8173601-5 (Version None)
Quarter: 2012Q1

REPORT INFORMATION
  Report Type: 
  Country: None (occurrence: None)
  Receive Date: 20120229
  Receipt Date: 20120227
  Transmission Date: 20120608
  Serious: Yes (Other)
  Sender: FDA-Public Use
  Company Number: US-PFIZER INC-2012051645

PATIENT
  Sex: Female
  Weight: 100.68 kg

DRUGS (6)
  1. LIPITOR [Suspect]
     Indication: BLOOD CHOLESTEROL INCREASED
     Dosage: 10 MG, 1X/DAY
     Route: 048
  2. PRILOSEC [Concomitant]
     Indication: DYSPEPSIA
     Dosage: UNK
  3. PREMARIN [Suspect]
     Indication: HYSTERECTOMY
     Dosage: UNK
     Dates: start: 20020101, end: 20050101
  4. LIPITOR [Suspect]
     Dosage: UNK
     Route: 048
  5. LISINOPRIL AND HYDROCHLOROTHIAZIDE [Concomitant]
     Indication: HYPERTENSION
     Dosage: UNK
  6. ATENOLOL [Concomitant]
     Indication: HYPERTENSION
     Dosage: UNK

REACTIONS (5)
  - MEMORY IMPAIRMENT [None]
  - INSOMNIA [None]
  - HYPERHIDROSIS [None]
  - FATIGUE [None]
  - EPILEPSY [None]
